FAERS Safety Report 7547257-6 (Version None)
Quarter: 2011Q2

REPORT INFORMATION
  Report Type: 
  Country: None (occurrence: None)
  Receive Date: 20110614
  Receipt Date: 20110420
  Transmission Date: 20111010
  Serious: Yes (Hospitalization)
  Sender: FDA-Public Use
  Company Number: PHHO2011US07047

PATIENT
  Sex: Female
  Weight: 102.4 kg

DRUGS (14)
  1. LASIX [Concomitant]
  2. BLINDED ALISKIREN [Suspect]
     Indication: CARDIOVASCULAR DISORDER
     Dosage: CODE NOT BROKEN
     Dates: start: 20100407
  3. NOVOLOG [Suspect]
  4. ADALAT [Concomitant]
     Dosage: UNK
  5. IMDUR [Concomitant]
  6. BLINDED NO TREATMENT RECEIVED [Suspect]
     Indication: CARDIOVASCULAR DISORDER
     Dosage: CODE NOT BROKEN
     Dates: start: 20100407
  7. PLACEBO [Suspect]
     Indication: CARDIOVASCULAR DISORDER
     Dosage: CODE NOT BROKEN
     Dates: start: 20100407
  8. ZOCOR [Concomitant]
  9. COZAAR [Concomitant]
  10. LANTUS [Suspect]
  11. TIMOPTIC [Concomitant]
  12. NEPHRON [Concomitant]
  13. METOPROLOL [Suspect]
  14. ASPIRIN [Concomitant]

REACTIONS (2)
  - HYPOGLYCAEMIA [None]
  - BRADYCARDIA [None]
